FAERS Safety Report 14426057 (Version 2)
Quarter: 2019Q2

REPORT INFORMATION
  Report Type: Spontaneous
  Country: US (occurrence: US)
  Receive Date: 20180123
  Receipt Date: 20190517
  Transmission Date: 20190711
  Serious: Yes (Hospitalization, Other)
  Sender: FDA-Public Use
  Company Number: US-PFIZER INC-2018027777

PATIENT
  Age: 75 Year
  Sex: Male
  Weight: 88 kg

DRUGS (10)
  1. LYRICA [Suspect]
     Active Substance: PREGABALIN
     Indication: CARDIOVASCULAR DISORDER
     Dosage: 50 MG, 3X/DAY
     Route: 048
     Dates: start: 2017
  2. RANITIDINE. [Concomitant]
     Active Substance: RANITIDINE
     Dosage: UNK
  3. LEVOTHYROXINE SODIUM. [Concomitant]
     Active Substance: LEVOTHYROXINE SODIUM
     Dosage: UNK
  4. SPIRONOLACTONE. [Concomitant]
     Active Substance: SPIRONOLACTONE
     Dosage: UNK
  5. LYRICA [Suspect]
     Active Substance: PREGABALIN
     Dosage: 50 MG, 2X/DAY
     Route: 048
  6. PANTOPRAZOLE [Concomitant]
     Active Substance: PANTOPRAZOLE
     Dosage: UNK
  7. FUROSEMIDE. [Concomitant]
     Active Substance: FUROSEMIDE
     Dosage: UNK
  8. IRON [Concomitant]
     Active Substance: IRON
     Dosage: UNK
  9. PAROXETINE. [Concomitant]
     Active Substance: PAROXETINE
     Dosage: UNK
  10. MAG OXIDE [Concomitant]
     Active Substance: MAGNESIUM OXIDE
     Dosage: UNK

REACTIONS (7)
  - Off label use [Not Recovered/Not Resolved]
  - Paraesthesia [Unknown]
  - Intentional product misuse [Not Recovered/Not Resolved]
  - Hypoaesthesia [Unknown]
  - Lung neoplasm malignant [Unknown]
  - Product use in unapproved indication [Not Recovered/Not Resolved]
  - Intervertebral disc protrusion [Recovered/Resolved]

NARRATIVE: CASE EVENT DATE: 201712
